FAERS Safety Report 25612983 (Version 1)
Quarter: 2025Q3

REPORT INFORMATION
  Report Type: Spontaneous
  Country: GB (occurrence: GB)
  Receive Date: 20250728
  Receipt Date: 20250728
  Transmission Date: 20251020
  Serious: Yes (Other)
  Sender: MYLAN
  Company Number: None

PATIENT
  Age: 65 Year
  Sex: Female

DRUGS (4)
  1. COLCHICINE [Suspect]
     Active Substance: COLCHICINE
     Indication: Product used for unknown indication
  2. COLCHICINE [Suspect]
     Active Substance: COLCHICINE
     Route: 065
  3. COLCHICINE [Suspect]
     Active Substance: COLCHICINE
     Route: 065
  4. COLCHICINE [Suspect]
     Active Substance: COLCHICINE

REACTIONS (3)
  - Hallucination [Unknown]
  - Delirium [Unknown]
  - Feeling hot [Unknown]

NARRATIVE: CASE EVENT DATE: 20241001
